FAERS Safety Report 11442032 (Version 2)
Quarter: 2015Q3

REPORT INFORMATION
  Report Type: Spontaneous
  Country: US (occurrence: US)
  Receive Date: 20150901
  Receipt Date: 20150914
  Transmission Date: 20151125
  Serious: No
  Sender: FDA-Public Use
  Company Number: US-PFIZER INC-2015276423

PATIENT
  Age: 84 Year
  Sex: Female
  Weight: 56 kg

DRUGS (1)
  1. FLECTOR [Suspect]
     Active Substance: DICLOFENAC EPOLAMINE
     Indication: BACK PAIN
     Dosage: OONE 1.3% TOPICAL PATCH CUT IN HALF, HALF PATCH ON EACH SIDE OF LOWER SPINE
     Dates: start: 20150817

REACTIONS (1)
  - Administration site warmth [Unknown]

NARRATIVE: CASE EVENT DATE: 20150817
